FAERS Safety Report 5226057-6 (Version None)
Quarter: 2007Q1

REPORT INFORMATION
  Report Type: 
  Country: None (occurrence: None)
  Receive Date: 20070201
  Receipt Date: 20070124
  Transmission Date: 20070707
  Serious: Yes (Hospitalization)
  Sender: FDA-Public Use
  Company Number: FR-BRISTOL-MYERS SQUIBB COMPANY-13332952

PATIENT
  Age: 51 Year
  Sex: Male
  Weight: 86 kg

DRUGS (6)
  1. ELISOR TABS [Suspect]
     Indication: HYPERCHOLESTEROLAEMIA
     Route: 048
     Dates: start: 20040301
  2. APROVEL [Concomitant]
     Indication: HYPERCHOLESTEROLAEMIA
  3. PREVISCAN [Concomitant]
  4. SECTRAL [Concomitant]
  5. MONO-TILDIEM [Concomitant]
  6. CALCIUM [Concomitant]

REACTIONS (3)
  - FATIGUE [None]
  - HYPERINSULINISM [None]
  - MALAISE [None]
